FAERS Safety Report 9055270 (Version 2)
Quarter: 2013Q1

REPORT INFORMATION
  Report Type: Spontaneous
  Country: US (occurrence: US)
  Receive Date: 20130206
  Receipt Date: 20130308
  Transmission Date: 20140127
  Serious: Yes (Hospitalization)
  Sender: FDA-Public Use
  Company Number: US-JNJFOC-20130116168

PATIENT
  Sex: Male

DRUGS (6)
  1. REMICADE [Suspect]
     Indication: COLITIS ULCERATIVE
     Dosage: 2ND WEEK DOSE
     Route: 042
     Dates: start: 20130118
  2. REMICADE [Suspect]
     Indication: COLITIS ULCERATIVE
     Dosage: 0 WEEK DOSE
     Route: 042
     Dates: start: 20130105
  3. IMURAN [Concomitant]
     Indication: COLITIS ULCERATIVE
     Route: 065
  4. 5-ASA [Concomitant]
     Indication: COLITIS ULCERATIVE
     Route: 065
  5. LIALDA [Concomitant]
     Indication: COLITIS ULCERATIVE
     Route: 065
  6. PREDNISONE [Concomitant]
     Indication: COLITIS ULCERATIVE
     Route: 065

REACTIONS (3)
  - Rash pustular [Recovered/Resolved]
  - Body temperature increased [Not Recovered/Not Resolved]
  - Chills [Not Recovered/Not Resolved]
